FAERS Safety Report 7482239-4 (Version None)
Quarter: 2011Q2

REPORT INFORMATION
  Report Type: 
  Country: None (occurrence: None)
  Receive Date: 20110516
  Receipt Date: 20110509
  Transmission Date: 20111010
  Serious: No
  Sender: FDA-Public Use
  Company Number: US-PFIZER INC-2011085816

PATIENT
  Sex: Male
  Weight: 82 kg

DRUGS (1)
  1. LATANOPROST [Suspect]
     Indication: GLAUCOMA
     Dosage: 1 GTT IN HIS LEFT EYE AT BEDTIME
     Dates: start: 20110416, end: 20110419

REACTIONS (4)
  - VISION BLURRED [None]
  - EYE IRRITATION [None]
  - INSOMNIA [None]
  - DISCOMFORT [None]
